FAERS Safety Report 6019982-X (Version None)
Quarter: 2008Q4

REPORT INFORMATION
  Report Type: 
  Country: None (occurrence: None)
  Receive Date: 20081223
  Receipt Date: 20081113
  Transmission Date: 20090506
  Serious: Yes (Life-Threatening, Hospitalization)
  Sender: FDA-Public Use
  Company Number: 2008S1020417

PATIENT
  Age: 76 Year
  Sex: Female

DRUGS (8)
  1. PERINDOPRIL ERBUMINE [Suspect]
     Dosage: 2 MG DAILY ORAL
     Route: 048
     Dates: end: 20081006
  2. CORDARONE [Suspect]
     Dosage: 200 MG DAILY ORAL
     Route: 048
     Dates: end: 20081006
  3. BISOPROLOL FUMARATE [Suspect]
     Dosage: 1.25 MG DAILY ORAL
     Route: 048
     Dates: end: 20081006
  4. LASIX [Suspect]
     Dosage: 250 MG TWICE A DAY ORAL
     Route: 048
     Dates: end: 20081006
  5. IMOVANE [Concomitant]
  6. DEDROGYL [Concomitant]
  7. INSULIN ASPART [Concomitant]
  8. LANTUS [Concomitant]

REACTIONS (17)
  - ASTHENIA [None]
  - BLOOD CREATININE INCREASED [None]
  - BLOOD THYROID STIMULATING HORMONE INCREASED [None]
  - BLOOD UREA INCREASED [None]
  - BRADYARRHYTHMIA [None]
  - BRADYCARDIA [None]
  - BUNDLE BRANCH BLOCK LEFT [None]
  - CARDIAC FAILURE [None]
  - CARDIOMEGALY [None]
  - CREPITATIONS [None]
  - DERMATITIS [None]
  - DIZZINESS POSTURAL [None]
  - GENERAL PHYSICAL HEALTH DETERIORATION [None]
  - HEART SOUNDS ABNORMAL [None]
  - HYPERKALAEMIA [None]
  - OEDEMA PERIPHERAL [None]
  - VENOUS INSUFFICIENCY [None]
